FAERS Safety Report 25653763 (Version 1)
Quarter: 2025Q3

REPORT INFORMATION
  Report Type: Spontaneous
  Country: CN (occurrence: CN)
  Receive Date: 20250807
  Receipt Date: 20250807
  Transmission Date: 20251021
  Serious: Yes (Hospitalization)
  Sender: MYLAN
  Company Number: CN-MYLANLABS-2025M1064766

PATIENT
  Age: 66 Year
  Sex: Female

DRUGS (36)
  1. MYCOPHENOLATE MOFETIL [Suspect]
     Active Substance: MYCOPHENOLATE MOFETIL
     Indication: Immunosuppressant drug therapy
     Route: 065
  2. MYCOPHENOLATE MOFETIL [Suspect]
     Active Substance: MYCOPHENOLATE MOFETIL
  3. MYCOPHENOLATE MOFETIL [Suspect]
     Active Substance: MYCOPHENOLATE MOFETIL
  4. MYCOPHENOLATE MOFETIL [Suspect]
     Active Substance: MYCOPHENOLATE MOFETIL
     Route: 065
  5. MYCOPHENOLATE MOFETIL [Suspect]
     Active Substance: MYCOPHENOLATE MOFETIL
     Dosage: 0.25 GRAM, BID (FURTHER RECHALLENGED WITH 0.25 G, EVERY 12H)
     Route: 065
  6. MYCOPHENOLATE MOFETIL [Suspect]
     Active Substance: MYCOPHENOLATE MOFETIL
     Dosage: 0.25 GRAM, BID (FURTHER RECHALLENGED WITH 0.25 G, EVERY 12H)
  7. MYCOPHENOLATE MOFETIL [Suspect]
     Active Substance: MYCOPHENOLATE MOFETIL
     Dosage: 0.25 GRAM, BID (FURTHER RECHALLENGED WITH 0.25 G, EVERY 12H)
  8. MYCOPHENOLATE MOFETIL [Suspect]
     Active Substance: MYCOPHENOLATE MOFETIL
     Dosage: 0.25 GRAM, BID (FURTHER RECHALLENGED WITH 0.25 G, EVERY 12H)
     Route: 065
  9. CYCLOSPORINE [Suspect]
     Active Substance: CYCLOSPORINE
     Indication: Immunosuppressant drug therapy
     Route: 065
  10. CYCLOSPORINE [Suspect]
     Active Substance: CYCLOSPORINE
  11. CYCLOSPORINE [Suspect]
     Active Substance: CYCLOSPORINE
  12. CYCLOSPORINE [Suspect]
     Active Substance: CYCLOSPORINE
     Route: 065
  13. CYCLOSPORINE [Suspect]
     Active Substance: CYCLOSPORINE
     Dosage: 50 MILLIGRAM, BID ( FURTHER RECHALLENGED WITH 50MG EVERY 12H THERAPY)
     Route: 065
  14. CYCLOSPORINE [Suspect]
     Active Substance: CYCLOSPORINE
     Dosage: 50 MILLIGRAM, BID ( FURTHER RECHALLENGED WITH 50MG EVERY 12H THERAPY)
  15. CYCLOSPORINE [Suspect]
     Active Substance: CYCLOSPORINE
     Dosage: 50 MILLIGRAM, BID ( FURTHER RECHALLENGED WITH 50MG EVERY 12H THERAPY)
  16. CYCLOSPORINE [Suspect]
     Active Substance: CYCLOSPORINE
     Dosage: 50 MILLIGRAM, BID ( FURTHER RECHALLENGED WITH 50MG EVERY 12H THERAPY)
     Route: 065
  17. ATORVASTATIN [Concomitant]
     Active Substance: ATORVASTATIN
     Indication: Lipid management
     Dosage: 20 MILLIGRAM, HS (RECEIVED AT BEDTIME)
  18. ATORVASTATIN [Concomitant]
     Active Substance: ATORVASTATIN
     Dosage: 20 MILLIGRAM, HS (RECEIVED AT BEDTIME)
     Route: 065
  19. ATORVASTATIN [Concomitant]
     Active Substance: ATORVASTATIN
     Dosage: 20 MILLIGRAM, HS (RECEIVED AT BEDTIME)
     Route: 065
  20. ATORVASTATIN [Concomitant]
     Active Substance: ATORVASTATIN
     Dosage: 20 MILLIGRAM, HS (RECEIVED AT BEDTIME)
  21. CEFTAZIDIME [Concomitant]
     Active Substance: CEFTAZIDIME
     Indication: Anti-infective therapy
     Dosage: 1 GRAM, Q8H
  22. CEFTAZIDIME [Concomitant]
     Active Substance: CEFTAZIDIME
     Dosage: 1 GRAM, Q8H
     Route: 042
  23. CEFTAZIDIME [Concomitant]
     Active Substance: CEFTAZIDIME
     Dosage: 1 GRAM, Q8H
     Route: 042
  24. CEFTAZIDIME [Concomitant]
     Active Substance: CEFTAZIDIME
     Dosage: 1 GRAM, Q8H
  25. Sanguisorba officinalis [Concomitant]
     Indication: White blood cell count increased
  26. Sanguisorba officinalis [Concomitant]
     Route: 065
  27. Sanguisorba officinalis [Concomitant]
     Route: 065
  28. Sanguisorba officinalis [Concomitant]
  29. LEUCOGEN [Concomitant]
     Active Substance: LEUCOGEN
     Indication: White blood cell count increased
  30. LEUCOGEN [Concomitant]
     Active Substance: LEUCOGEN
     Route: 065
  31. LEUCOGEN [Concomitant]
     Active Substance: LEUCOGEN
     Route: 065
  32. LEUCOGEN [Concomitant]
     Active Substance: LEUCOGEN
  33. FILGRASTIM [Concomitant]
     Active Substance: FILGRASTIM
     Indication: White blood cell count increased
  34. FILGRASTIM [Concomitant]
     Active Substance: FILGRASTIM
     Route: 058
  35. FILGRASTIM [Concomitant]
     Active Substance: FILGRASTIM
     Route: 058
  36. FILGRASTIM [Concomitant]
     Active Substance: FILGRASTIM

REACTIONS (1)
  - COVID-19 [Recovering/Resolving]
